FAERS Safety Report 19708151 (Version 1)
Quarter: 2021Q3

REPORT INFORMATION
  Report Type: Spontaneous
  Country: US (occurrence: US)
  Receive Date: 20210816
  Receipt Date: 20210816
  Transmission Date: 20211014
  Serious: Yes (Other)
  Sender: FDA-Public Use
  Company Number: US-HIKMA PHARMACEUTICALS USA INC.-US-H14001-21-03628

PATIENT
  Sex: Female
  Weight: 94.35 kg

DRUGS (1)
  1. METHOTREXATE. [Suspect]
     Active Substance: METHOTREXATE
     Indication: RHEUMATOID ARTHRITIS
     Route: 048

REACTIONS (5)
  - Liver disorder [Unknown]
  - Memory impairment [Unknown]
  - White blood cell count decreased [Unknown]
  - Renal disorder [Unknown]
  - Mental disorder [Unknown]
